FAERS Safety Report 13097266 (Version 2)
Quarter: 2017Q1

REPORT INFORMATION
  Report Type: Spontaneous
  Country: US (occurrence: GB)
  Receive Date: 20170109
  Receipt Date: 20170120
  Transmission Date: 20170428
  Serious: Yes (Other)
  Sender: FDA-Public Use
  Company Number: GB-PFIZER INC-3156655

PATIENT
  Sex: Female

DRUGS (9)
  1. DEFEROXAMINE MESILATE [Suspect]
     Active Substance: DEFEROXAMINE MESYLATE
     Dosage: 1000 MG, 5 TIMES A WEEK NIGHTLY OVER 8 HOURS
     Route: 058
     Dates: start: 20160304
  2. BAXTER SALINE [Suspect]
     Active Substance: SODIUM CHLORIDE
     Indication: MEDICATION DILUTION
     Dosage: 0.9% 50 ML, 5 TIMES PER WEEK
     Dates: start: 201508
  3. BAXTER WATER FOR INJECTION [Suspect]
     Active Substance: WATER
     Indication: MEDICATION DILUTION
     Dosage: 10 ML, 5 TIMES PER WEEK
     Dates: start: 201508
  4. BAXTER SALINE [Suspect]
     Active Substance: SODIUM CHLORIDE
     Dosage: 60 ML, UNK
     Route: 058
     Dates: start: 20160304
  5. DEFEROXAMINE MESILATE [Suspect]
     Active Substance: DEFEROXAMINE MESYLATE
     Dosage: 1000 MG, 5 TIMES A WEEK
     Dates: start: 20151218
  6. DEFEROXAMINE MESILATE [Suspect]
     Active Substance: DEFEROXAMINE MESYLATE
     Dosage: 1000 MG, 5 TIMES A WEEK
     Dates: start: 201508
  7. BAXTER SALINE [Suspect]
     Active Substance: SODIUM CHLORIDE
     Dosage: 0.9% 50 ML, 5 TIMES PER WEEK
     Dates: start: 20151218
  8. BAXTER WATER FOR INJECTION [Suspect]
     Active Substance: WATER
     Dosage: 10 ML, 5 TIMES PER WEEK
     Route: 065
     Dates: start: 20151218
  9. BAXTER WATER FOR INJECTION [Suspect]
     Active Substance: WATER
     Dosage: 10 ML, 5 TIMES PER WEEK NIGHTLY OVER 8 HOURS
     Route: 058
     Dates: start: 20160304

REACTIONS (3)
  - Influenza [Unknown]
  - Lower respiratory tract infection bacterial [Recovered/Resolved]
  - Lower respiratory tract infection bacterial [Recovered/Resolved]

NARRATIVE: CASE EVENT DATE: 20160105
